FAERS Safety Report 18701819 (Version 2)
Quarter: 2021Q1

REPORT INFORMATION
  Report Type: Report from Study
  Country: US (occurrence: US)
  Receive Date: 20210105
  Receipt Date: 20210301
  Transmission Date: 20210419
  Serious: Yes (Hospitalization, Other)
  Sender: FDA-Public Use
  Company Number: US-MYLANLABS-2020M1106722

PATIENT
  Age: 27 Year
  Sex: Female
  Weight: 74.83 kg

DRUGS (1)
  1. XULANE [Suspect]
     Active Substance: ETHINYL ESTRADIOL\NORELGESTROMIN
     Indication: TRANSDERMAL CONTRACEPTION
     Dosage: 4.86 MG NORELGESTROMIN AND 0.53 MG ETHINYL ESTRADIOL IN A 14
     Route: 062
     Dates: start: 20201211, end: 20201217

REACTIONS (1)
  - Abdominal hernia obstructive [Recovered/Resolved]

NARRATIVE: CASE EVENT DATE: 20201217
